FAERS Safety Report 9272264 (Version 1)
Quarter: 2013Q2

REPORT INFORMATION
  Report Type: Spontaneous
  Country: US (occurrence: US)
  Receive Date: 20130506
  Receipt Date: 20130506
  Transmission Date: 20140414
  Serious: No
  Sender: FDA-Public Use
  Company Number: US-ASTRAZENECA-2012SE96372

PATIENT
  Sex: Male

DRUGS (7)
  1. PRILOSEC OTC [Suspect]
     Indication: DYSPEPSIA
     Route: 048
     Dates: start: 20121216, end: 20121216
  2. LISINOPRIL [Concomitant]
     Dosage: UNKNOWN
  3. HYDROCHLOROTHIAZIDE [Concomitant]
     Dosage: UNKNOWN
  4. LORATADINE [Concomitant]
     Dosage: UNKNOWN
  5. PRAVASTATIN [Concomitant]
     Dosage: UNKNOWN
  6. FISH OIL [Concomitant]
     Dosage: UNKNOWN
  7. URINARY TRACT DRUG [Concomitant]
     Dosage: UNKNOWN

REACTIONS (3)
  - Chromaturia [Not Recovered/Not Resolved]
  - Dizziness [Recovered/Resolved]
  - Dry mouth [Not Recovered/Not Resolved]
